FAERS Safety Report 20993527 (Version 1)
Quarter: 2022Q2

REPORT INFORMATION
  Report Type: Spontaneous
  Country: US (occurrence: None)
  Receive Date: 20220621
  Receipt Date: 20220621
  Transmission Date: 20220721
  Serious: Yes (unspecified)
  Sender: FDA-Public Use
  Company Number: None

PATIENT
  Age: 47 Year
  Sex: Male
  Weight: 86.8 kg

DRUGS (2)
  1. LEVOPHED [Suspect]
     Active Substance: NOREPINEPHRINE BITARTRATE
     Indication: Cardiogenic shock
     Dosage: FREQUENCY : DAILY;?
     Route: 041
     Dates: start: 20220621
  2. DOPAMINE [Concomitant]
     Active Substance: DOPAMINE HYDROCHLORIDE

REACTIONS (1)
  - Infusion site injury [None]

NARRATIVE: CASE EVENT DATE: 20220621
